FAERS Safety Report 4471675-6 (Version None)
Quarter: 2004Q4

REPORT INFORMATION
  Report Type: 
  Country: None (occurrence: None)
  Receive Date: 20041012
  Receipt Date: 20041006
  Transmission Date: 20050328
  Serious: Yes (Disabling)
  Sender: FDA-Public Use
  Company Number: US-MERCK-0410USA00979

PATIENT
  Age: 61 Year
  Sex: Female

DRUGS (6)
  1. PREMARIN [Concomitant]
     Route: 065
  2. AMARYL [Concomitant]
     Route: 065
  3. LISINOPRIL [Concomitant]
     Route: 065
  4. GLUCOPHAGE [Concomitant]
     Route: 065
  5. VIOXX [Suspect]
     Indication: SPONDYLITIS
     Route: 048
     Dates: start: 20040101, end: 20040101
  6. TRAZODONE HYDROCHLORIDE [Concomitant]
     Route: 065

REACTIONS (2)
  - ABDOMINAL DISTENSION [None]
  - OEDEMA PERIPHERAL [None]
